FAERS Safety Report 22144799 (Version 2)
Quarter: 2023Q1

REPORT INFORMATION
  Report Type: Other
  Country: US (occurrence: None)
  Receive Date: 20230328
  Receipt Date: 20230331
  Transmission Date: 20230417
  Serious: Yes (Other)
  Sender: FDA-Public Use
  Company Number: US-ROCHE-3313884

PATIENT
  Age: 36 Year
  Sex: Female
  Weight: 58.1 kg

DRUGS (11)
  1. VALIUM [Suspect]
     Active Substance: DIAZEPAM
     Indication: Vertigo
     Dosage: ONCE IN 8 HRS AS NEEDED FOR 10 DAYS
     Route: 048
  2. GABAPENTIN [Concomitant]
     Active Substance: GABAPENTIN
     Indication: Neuralgia
  3. FLEXERIL [Concomitant]
     Active Substance: CYCLOBENZAPRINE HYDROCHLORIDE
     Indication: Muscle spasms
     Dosage: DOSE 1 TAB
     Route: 048
  4. TYSABRI [Concomitant]
     Active Substance: NATALIZUMAB
     Dosage: DOSE: 1 PUFF
     Route: 055
     Dates: start: 202207
  5. FLONASE [Concomitant]
     Active Substance: FLUTICASONE PROPIONATE
     Dosage: ADMINISTER 1 SPRAY INTO EACH NOSTRIL 2 TIMES A DAY AS NEEDED
  6. VOLTAREN [Concomitant]
     Active Substance: DICLOFENAC SODIUM
     Route: 061
  7. NEURONTIN [Concomitant]
     Active Substance: GABAPENTIN
     Route: 048
  8. MAXALT [Concomitant]
     Active Substance: RIZATRIPTAN BENZOATE
     Indication: Migraine
     Dosage: MAY REPEAT IN 2 HOURS IF UNRESOLVED. DO NOT EXCEED 30 MG IN 24 HOURS.
     Route: 048
  9. ZOLOFT [Concomitant]
     Active Substance: SERTRALINE HYDROCHLORIDE
  10. RETIN-A [Concomitant]
     Active Substance: TRETINOIN
     Route: 061
  11. VALIUM [Concomitant]
     Active Substance: DIAZEPAM
     Indication: Vertigo
     Dosage: TAKE 1 TABLET (2 MG) 30 TABLET BY MOUTH EVERY 8 HOURS AS NEEDED (VERTIGO) FOR UP TO 10 DAYS.
     Route: 048

REACTIONS (7)
  - Hypoaesthesia [Unknown]
  - Asthenia [Unknown]
  - Paraesthesia [Unknown]
  - Allodynia [Unknown]
  - Arthralgia [Unknown]
  - Balance disorder [Unknown]
  - JC polyomavirus test positive [Unknown]
